FAERS Safety Report 6483795-5 (Version None)
Quarter: 2009Q4

REPORT INFORMATION
  Report Type: 
  Country: None (occurrence: None)
  Receive Date: 20091123
  Receipt Date: 20090724
  Transmission Date: 20100525
  Serious: No
  Sender: FDA-Public Use
  Company Number: 8049434

PATIENT
  Age: 45 Year
  Sex: Female
  Weight: 82.72 kg

DRUGS (2)
  1. CIMZIA [Suspect]
     Indication: CROHN'S DISEASE
     Dosage: 400 MG SC
     Route: 058
     Dates: start: 20090402
  2. CIMZIA [Suspect]

REACTIONS (1)
  - ARTHRITIS [None]
